FAERS Safety Report 8852884 (Version 3)
Quarter: 2012Q4

REPORT INFORMATION
  Report Type: Report from Study
  Country: JP (occurrence: JP)
  Receive Date: 20121022
  Receipt Date: 20121120
  Transmission Date: 20130627
  Serious: Yes (Other)
  Sender: FDA-Public Use
  Company Number: JP-PFIZER INC-2012251473

PATIENT

DRUGS (1)
  1. EPIRUBICIN HCL [Suspect]
     Indication: HEPATOCELLULAR CARCINOMA NON-RESECTABLE
     Dosage: UNK

REACTIONS (1)
  - Mallory-Weiss syndrome [Recovered/Resolved]
